FAERS Safety Report 8005631-8 (Version None)
Quarter: 2011Q4

REPORT INFORMATION
  Report Type: 
  Country: None (occurrence: None)
  Receive Date: 20111223
  Receipt Date: 20111214
  Transmission Date: 20120403
  Serious: Yes (Hospitalization)
  Sender: FDA-Public Use
  Company Number: FR-BRISTOL-MYERS SQUIBB COMPANY-16311185

PATIENT
  Age: 59 Year
  Sex: Female

DRUGS (2)
  1. FLUOROURACIL [Suspect]
     Indication: ANAL CANCER
     Dosage: ROUTE :DR,5-FU INJ 250 KYOWA,2.5G IN NONSTOP DRIP INF 7Q7DAYS,2.5MG,COURSE:2
     Dates: start: 20111107, end: 20111121
  2. MITOMYCIN [Suspect]
     Indication: ANAL CANCER
     Dosage: INJ,ROUTE: IJ,07NOV11-UNK;18.8MG,14NOV11-UNK,12MG/M2 FROM D1-28 IN NONSTOP DRIP INF 7Q7DAYS,COURSE:2
     Dates: start: 20111107

REACTIONS (5)
  - PYREXIA [None]
  - DIARRHOEA [None]
  - WEIGHT DECREASED [None]
  - STOMATITIS [None]
  - TRISMUS [None]
